FAERS Safety Report 17878025 (Version 2)
Quarter: 2020Q3

REPORT INFORMATION
  Report Type: Spontaneous
  Country: PL (occurrence: PL)
  Receive Date: 20200610
  Receipt Date: 20200801
  Transmission Date: 20201103
  Serious: Yes (Other)
  Sender: FDA-Public Use
  Company Number: PL-AUROBINDO-AUR-APL-2020-027726

PATIENT
  Age: 30 Year
  Sex: Female

DRUGS (9)
  1. CHLOROQUINE. [Suspect]
     Active Substance: CHLOROQUINE
     Indication: COVID-19
     Dosage: 250 MILLIGRAM
     Route: 065
     Dates: start: 20200422, end: 20200427
  2. TOCILIZUMAB. [Suspect]
     Active Substance: TOCILIZUMAB
     Indication: COVID-19
     Dosage: 480 MILLIGRAM
     Route: 042
     Dates: start: 20200422
  3. THYROXINE [Concomitant]
     Active Substance: LEVOTHYROXINE
     Indication: HYPOTHYROIDISM
     Dosage: UNK
     Route: 065
  4. CHLOROQUINE. [Suspect]
     Active Substance: CHLOROQUINE
     Dosage: 500 MILLIGRAM
     Route: 065
     Dates: start: 20200417, end: 20200421
  5. AZITHROMYCIN ANHYDROUS. [Suspect]
     Active Substance: AZITHROMYCIN ANHYDROUS
     Indication: COVID-19
     Dosage: 500 MILLIGRAM, ONCE A DAY
     Route: 065
     Dates: start: 20200417, end: 20200428
  6. AZITHROMYCIN ANHYDROUS. [Suspect]
     Active Substance: AZITHROMYCIN ANHYDROUS
     Dosage: 250 MILLIGRAM, ONCE A DAY
     Route: 065
     Dates: start: 20200420, end: 20200424
  7. LOPINAVIR;RITONAVIR [Suspect]
     Active Substance: LOPINAVIR\RITONAVIR
     Indication: COVID-19
     Dosage: 500 MILLIGRAM, 0.5 DAYS
     Route: 065
     Dates: start: 20200421, end: 20200428
  8. TOCILIZUMAB. [Suspect]
     Active Substance: TOCILIZUMAB
     Dosage: UNK,TWO SEPARATED DOSES 8 MG/KG EVERY 12?24 H
     Route: 042
     Dates: start: 20200422, end: 20200423
  9. METHYLPREDNISOLONE. [Concomitant]
     Active Substance: METHYLPREDNISOLONE
     Indication: PRODUCT USED FOR UNKNOWN INDICATION
     Dosage: UNK, ONCE A DAY (FOR 3 CONSECUTIVE DAYS)
     Route: 065
     Dates: start: 20200424, end: 20200426

REACTIONS (3)
  - Off label use [Unknown]
  - Intentional product use issue [Unknown]
  - Interleukin level increased [Unknown]
